FAERS Safety Report 11793763 (Version 1)
Quarter: 2015Q4

REPORT INFORMATION
  Report Type: Spontaneous
  Country: US (occurrence: None)
  Receive Date: 20151201
  Receipt Date: 20151201
  Transmission Date: 20160305
  Serious: Yes (Disabling)
  Sender: FDA-Public Use
  Company Number: None

PATIENT
  Age: 67 Year
  Sex: Female
  Weight: 59.88 kg

DRUGS (15)
  1. PURI-T [Concomitant]
  2. COQIU [Concomitant]
  3. LEVAQUIN [Suspect]
     Active Substance: LEVOFLOXACIN
     Indication: SINUSITIS
     Dosage: 7 PILLS
     Dates: start: 20141229, end: 20150104
  4. FLUOXETINE [Concomitant]
     Active Substance: FLUOXETINE HYDROCHLORIDE
  5. VIT.D [Concomitant]
  6. MITOCORE [Concomitant]
  7. CELL WISE [Concomitant]
  8. MAGNESIUM [Concomitant]
     Active Substance: MAGNESIUM
  9. BIOTIN [Concomitant]
     Active Substance: BIOTIN
  10. LEVAQUIN [Suspect]
     Active Substance: LEVOFLOXACIN
     Indication: COUGH
     Dosage: 7 PILLS
     Dates: start: 20141229, end: 20150104
  11. OMEPRAZOLE. [Concomitant]
     Active Substance: OMEPRAZOLE
  12. VALACYCLOVIR [Concomitant]
     Active Substance: VALACYCLOVIR HYDROCHLORIDE
  13. GLUCOCIL [Concomitant]
  14. DICLOFENAC SOD DR [Concomitant]
  15. VOLTAREN [Concomitant]
     Active Substance: DICLOFENAC SODIUM

REACTIONS (7)
  - Pain [None]
  - Visual impairment [None]
  - Tremor [None]
  - Asthenia [None]
  - Pain in extremity [None]
  - Vision blurred [None]
  - Muscle spasms [None]

NARRATIVE: CASE EVENT DATE: 20141231
